FAERS Safety Report 11075062 (Version 1)
Quarter: 2015Q2

REPORT INFORMATION
  Report Type: Spontaneous
  Country: US (occurrence: US)
  Receive Date: 20150429
  Receipt Date: 20150429
  Transmission Date: 20150821
  Serious: Yes (Other)
  Sender: FDA-Public Use
  Company Number: US-AMGEN-USASP2015039170

PATIENT
  Age: 67 Year
  Sex: Female
  Weight: 40.82 kg

DRUGS (4)
  1. KCL [Concomitant]
     Active Substance: POTASSIUM CHLORIDE
  2. AROMASIN [Concomitant]
     Active Substance: EXEMESTANE
     Dosage: 25 MG, QD
     Route: 048
     Dates: start: 2011
  3. AFINITOR [Concomitant]
     Active Substance: EVEROLIMUS
     Dosage: 7.5 MG, QD
     Route: 048
     Dates: start: 20140809
  4. XGEVA [Suspect]
     Active Substance: DENOSUMAB
     Indication: METASTASES TO BONE
     Dosage: UNK
     Route: 065
     Dates: start: 201112

REACTIONS (15)
  - Clostridium difficile infection [Recovered/Resolved]
  - Conjunctival hyperaemia [Unknown]
  - Dyslipidaemia [Unknown]
  - Osteonecrosis of jaw [Unknown]
  - Gait disturbance [Not Recovered/Not Resolved]
  - Haematuria [Recovered/Resolved]
  - Dysuria [Recovered/Resolved]
  - Rhinorrhoea [Recovering/Resolving]
  - Malignant neoplasm progression [Unknown]
  - Thrombocytopenia [Unknown]
  - Mucosal inflammation [Unknown]
  - Hyperlipidaemia [Unknown]
  - Nystagmus [Unknown]
  - Weight increased [Unknown]
  - Eye discharge [Not Recovered/Not Resolved]
